FAERS Safety Report 5413229-0 (Version None)
Quarter: 2007Q3

REPORT INFORMATION
  Report Type: 
  Country: None (occurrence: None)
  Receive Date: 20070814
  Receipt Date: 20070808
  Transmission Date: 20080115
  Serious: Yes (Life-Threatening, Hospitalization)
  Sender: FDA-Public Use
  Company Number: PHHO2007US13355

PATIENT
  Sex: Female

DRUGS (1)
  1. *CGP 57148B* [Suspect]
     Indication: CHRONIC MYELOID LEUKAEMIA
     Route: 064

REACTIONS (4)
  - DISSEMINATED INTRAVASCULAR COAGULATION [None]
  - PLATELET COUNT ABNORMAL [None]
  - PREMATURE BABY [None]
  - PULMONARY OEDEMA NEONATAL [None]
